FAERS Safety Report 5725877-9 (Version None)
Quarter: 2008Q2

REPORT INFORMATION
  Report Type: 
  Country: None (occurrence: None)
  Receive Date: 20080429
  Receipt Date: 20080417
  Transmission Date: 20081010
  Serious: Yes (Death, Life-Threatening, Hospitalization, Other)
  Sender: FDA-Public Use
  Company Number: 2008-00312

PATIENT
  Age: 65 Year
  Sex: Male

DRUGS (9)
  1. VELCADE [Suspect]
     Indication: DRUG USE FOR UNKNOWN INDICATION
     Dosage: 1 MG/M2; 1.3 MG/M2
     Dates: start: 20071004, end: 20071210
  2. VELCADE [Suspect]
     Indication: DRUG USE FOR UNKNOWN INDICATION
     Dosage: 1 MG/M2; 1.3 MG/M2
     Dates: start: 20071217, end: 20071231
  3. REVLIMID [Suspect]
     Dosage: 25.00 MG
     Dates: start: 20070921, end: 20071007
  4. DECADRON [Concomitant]
  5. NEUPOGEN [Concomitant]
  6. HYTRIN [Concomitant]
  7. CYTOXAN [Concomitant]
  8. ZOMETA [Concomitant]
  9. PRILOSEC [Concomitant]

REACTIONS (30)
  - AGITATION [None]
  - BLOOD CALCIUM DECREASED [None]
  - BLOOD PRESSURE IMMEASURABLE [None]
  - BLOOD PRESSURE ORTHOSTATIC DECREASED [None]
  - CYTOMEGALOVIRUS ANTIBODY POSITIVE [None]
  - DEHYDRATION [None]
  - DRUG ERUPTION [None]
  - DYSPNOEA EXERTIONAL [None]
  - ENDOTRACHEAL INTUBATION COMPLICATION [None]
  - FEBRILE NEUTROPENIA [None]
  - FLUID OVERLOAD [None]
  - HAEMOPTYSIS [None]
  - HEART RATE INCREASED [None]
  - HERPES SIMPLEX SEROLOGY POSITIVE [None]
  - HYPERGLYCAEMIA [None]
  - METASTASES TO BONE [None]
  - MULTIPLE MYELOMA [None]
  - OEDEMA [None]
  - ORAL INTAKE REDUCED [None]
  - ORTHOSTATIC HYPOTENSION [None]
  - PANCYTOPENIA [None]
  - PLEURAL EFFUSION [None]
  - PULMONARY EMBOLISM [None]
  - RENAL CYST [None]
  - RENAL TUBULAR NECROSIS [None]
  - RUBELLA ANTIBODY POSITIVE [None]
  - SCROTAL OEDEMA [None]
  - SEPTIC SHOCK [None]
  - STEVENS-JOHNSON SYNDROME [None]
  - TACHYCARDIA [None]
